FAERS Safety Report 10415112 (Version 1)
Quarter: 2014Q3

REPORT INFORMATION
  Report Type: Spontaneous
  Country: US (occurrence: None)
  Receive Date: 20140827
  Receipt Date: 20140827
  Transmission Date: 20150326
  Serious: No
  Sender: FDA-Public Use
  Company Number: None

PATIENT
  Age: 66 Year
  Sex: Female

DRUGS (18)
  1. ALLOPURINOL. [Concomitant]
     Active Substance: ALLOPURINOL
  2. PROCHLORPERAZINE. [Concomitant]
     Active Substance: PROCHLORPERAZINE
  3. ESTRADIOL. [Concomitant]
     Active Substance: ESTRADIOL
  4. REVLIMID [Suspect]
     Active Substance: LENALIDOMIDE
     Indication: PLASMA CELL MYELOMA
     Route: 048
     Dates: start: 20140806
  5. SULFAMETHOXAZOLE-TRIMETHOPRIM (SMZ) [Concomitant]
     Active Substance: SULFAMETHOXAZOLE\TRIMETHOPRIM
  6. FERROUS GLUCONATE [Concomitant]
     Active Substance: FERROUS GLUCONATE
  7. DEXAMETHASONE. [Concomitant]
     Active Substance: DEXAMETHASONE
  8. ACETAMINOPHEN-CODEINE [Concomitant]
     Active Substance: ACETAMINOPHEN\CODEINE PHOSPHATE
  9. METRONIDAZOLE. [Concomitant]
     Active Substance: METRONIDAZOLE
  10. OMEPRAZOLE. [Concomitant]
     Active Substance: OMEPRAZOLE
  11. ONDANSETRON [Concomitant]
     Active Substance: ONDANSETRON
  12. OMNIPAQUE [Concomitant]
     Active Substance: IOHEXOL
  13. NAPROXEN. [Concomitant]
     Active Substance: NAPROXEN
  14. MEDROXYPROGESTERONE [Concomitant]
     Active Substance: MEDROXYPROGESTERONE
  15. LORAZEPAM. [Concomitant]
     Active Substance: LORAZEPAM
  16. HYDROMORPHONE [Concomitant]
     Active Substance: HYDROMORPHONE
  17. CYCLOBENZAPRINE [Concomitant]
     Active Substance: CYCLOBENZAPRINE
  18. CALCIUM CARBONATE/VITAMIN D3 [Concomitant]

REACTIONS (2)
  - Pruritus [None]
  - Rash [None]

NARRATIVE: CASE EVENT DATE: 20140818
